FAERS Safety Report 5289500-2 (Version None)
Quarter: 2007Q2

REPORT INFORMATION
  Report Type: 
  Country: None (occurrence: None)
  Receive Date: 20070406
  Receipt Date: 20070326
  Transmission Date: 20071010
  Serious: Yes (Hospitalization)
  Sender: FDA-Public Use
  Company Number: PHRM2007FR01127

PATIENT
  Age: 50 Year
  Sex: Male
  Weight: 80 kg

DRUGS (11)
  1. LAMISIL [Suspect]
     Indication: FUNGAL SKIN INFECTION
     Dosage: 250 MG, QD
     Route: 048
     Dates: start: 20070207
  2. NORVIR [Suspect]
     Indication: HIV INFECTION
     Dosage: 100 MG, QD
     Route: 048
     Dates: start: 20070207
  3. REYATAZ [Suspect]
     Indication: HIV INFECTION
     Dosage: 150 MG, BID
     Route: 048
     Dates: start: 20070207
  4. EMTRICITABINE (TRUVADA) [Suspect]
     Indication: HIV INFECTION
     Dosage: 1 DF, QD
     Route: 048
     Dates: start: 20070207
  5. TENORMIN [Concomitant]
     Indication: MYOCARDIAL INFARCTION
     Dosage: 100 MG, QD
     Route: 048
  6. BACTRIM [Concomitant]
     Indication: HIV INFECTION
     Dosage: 400 MG, QD
     Route: 048
     Dates: start: 20070206
  7. KARDEGIC [Concomitant]
     Dosage: 75 MG, QD
     Route: 048
  8. IMOVANE [Concomitant]
     Dosage: 3.75 MG/DAY
     Route: 048
     Dates: start: 20070205, end: 20070207
  9. PERSANTINE [Concomitant]
     Indication: SCINTIGRAPHY
     Dosage: 0.56 MG/KG
     Route: 042
     Dates: start: 20070206
  10. THALLIUM (201 TL) [Concomitant]
     Indication: SCINTIGRAPHY
     Dates: start: 20070206
  11. TENOFOVIR DISOPROXIL FUMARATE (TRUVADA) [Suspect]
     Indication: HIV INFECTION
     Dosage: 1 DF, QD
     Route: 048
     Dates: start: 20070207

REACTIONS (5)
  - DISTURBANCE IN ATTENTION [None]
  - LOSS OF CONSCIOUSNESS [None]
  - POST-TRAUMATIC AMNESTIC DISORDER [None]
  - RIB FRACTURE [None]
  - ROAD TRAFFIC ACCIDENT [None]
